FAERS Safety Report 4576898-3 (Version None)
Quarter: 2005Q1

REPORT INFORMATION
  Report Type: 
  Country: None (occurrence: None)
  Receive Date: 20050210
  Receipt Date: 20050131
  Transmission Date: 20050727
  Serious: Yes (Other)
  Sender: FDA-Public Use
  Company Number: HQ3051601JUL2002

PATIENT
  Sex: Male

DRUGS (1)
  1. ENBREL [Suspect]
     Indication: RHEUMATOID ARTHRITIS
     Dates: start: 19991115

REACTIONS (3)
  - EXANTHEM [None]
  - NONSPECIFIC REACTION [None]
  - RASH MACULO-PAPULAR [None]
